FAERS Safety Report 21387903 (Version 6)
Quarter: 2023Q1

REPORT INFORMATION
  Report Type: Spontaneous
  Country: PL (occurrence: PL)
  Receive Date: 20220928
  Receipt Date: 20230118
  Transmission Date: 20230418
  Serious: Yes (Death, Life-Threatening, Other)
  Sender: FDA-Public Use
  Company Number: PL-MYLANLABS-2022M1095970

PATIENT
  Age: 70 Year
  Sex: Male

DRUGS (13)
  1. EPINEPHRINE [Suspect]
     Active Substance: EPINEPHRINE
     Indication: Cardiac arrest
     Dosage: UNK
     Route: 065
  2. EPINEPHRINE [Suspect]
     Active Substance: EPINEPHRINE
     Indication: Resuscitation
  3. ATROPINE [Suspect]
     Active Substance: ATROPINE
     Indication: Cardiac arrest
     Dosage: UNK
     Route: 065
  4. ATROPINE [Suspect]
     Active Substance: ATROPINE
     Indication: Resuscitation
  5. LEVETIRACETAM [Suspect]
     Active Substance: LEVETIRACETAM
     Indication: Status epilepticus
     Dosage: 60 MILLIGRAM/KILOGRAM, QD
     Route: 065
  6. LEVETIRACETAM [Suspect]
     Active Substance: LEVETIRACETAM
     Indication: Partial seizures
  7. PHENYTOIN [Suspect]
     Active Substance: PHENYTOIN
     Indication: Status epilepticus
     Dosage: 15 MILLIGRAM/KILOGRAM
     Route: 065
  8. PHENYTOIN [Suspect]
     Active Substance: PHENYTOIN
     Indication: Partial seizures
  9. DIAZEPAM [Suspect]
     Active Substance: DIAZEPAM
     Indication: Generalised tonic-clonic seizure
     Dosage: 20 MILLIGRAM
     Route: 042
  10. VALPROATE SODIUM [Suspect]
     Active Substance: VALPROATE SODIUM
     Indication: Generalised tonic-clonic seizure
     Dosage: 40 MILLIGRAM/KILOGRAM
     Route: 042
  11. ATROPINE [Suspect]
     Active Substance: ATROPINE
     Indication: Cardiac arrest
     Dosage: 20 MILLIGRAM
     Route: 042
  12. ATROPINE [Suspect]
     Active Substance: ATROPINE
     Indication: Resuscitation
  13. EPINEPHRINE [Concomitant]
     Active Substance: EPINEPHRINE
     Indication: Cardiac arrest
     Dosage: 20 MILLIGRAM
     Route: 042

REACTIONS (10)
  - Death [Fatal]
  - Drug ineffective [Unknown]
  - Status epilepticus [Unknown]
  - Partial seizures [Unknown]
  - Multiple organ dysfunction syndrome [Unknown]
  - Condition aggravated [Unknown]
  - Cardiac arrest [Unknown]
  - Therapy non-responder [Unknown]
  - Off label use [Unknown]
  - Product use in unapproved indication [Unknown]
